FAERS Safety Report 4440508-6 (Version None)
Quarter: 2004Q3

REPORT INFORMATION
  Report Type: 
  Country: None (occurrence: None)
  Receive Date: 20040728
  Receipt Date: 20040414
  Transmission Date: 20050211
  Serious: No
  Sender: FDA-Public Use
  Company Number: USA030331163

PATIENT
  Age: 40 Year
  Sex: Male

DRUGS (2)
  1. STRATTERA [Suspect]
     Indication: ATTENTION DEFICIT/HYPERACTIVITY DISORDER
     Dosage: 60 MG/DAY
     Dates: start: 20030309
  2. RITALIN [Concomitant]

REACTIONS (8)
  - ABDOMINAL PAIN [None]
  - DECREASED APPETITE [None]
  - DYSURIA [None]
  - FEELING JITTERY [None]
  - MICTURITION URGENCY [None]
  - TESTICULAR PAIN [None]
  - TREMOR [None]
  - URINARY TRACT DISORDER [None]
